FAERS Safety Report 14393609 (Version 1)
Quarter: 2018Q1

REPORT INFORMATION
  Report Type: Spontaneous
  Country: US (occurrence: US)
  Receive Date: 20180115
  Receipt Date: 20180115
  Transmission Date: 20180509
  Serious: Yes (Hospitalization)
  Sender: FDA-Public Use
  Company Number: None

PATIENT
  Age: 47 Year
  Sex: Female

DRUGS (31)
  1. ATORVASTATIN [Concomitant]
     Active Substance: ATORVASTATIN
  2. XGEVA [Concomitant]
     Active Substance: DENOSUMAB
  3. OXYCODONE [Concomitant]
     Active Substance: OXYCODONE
  4. PROMETHAZINE [Concomitant]
     Active Substance: PROMETHAZINE\PROMETHAZINE HYDROCHLORIDE
  5. BENTYL [Concomitant]
     Active Substance: DICYCLOMINE HYDROCHLORIDE
  6. DIAZEPAM. [Concomitant]
     Active Substance: DIAZEPAM
  7. GABAPENTIN. [Concomitant]
     Active Substance: GABAPENTIN
  8. TEMOZOLOMIDE. [Suspect]
     Active Substance: TEMOZOLOMIDE
     Indication: MALIGNANT MELANOMA
     Dosage: OTHER FREQUENCY:QD ALONG WITH 5MG;?
     Route: 048
     Dates: start: 20170628
  9. SANCUSO [Concomitant]
     Active Substance: GRANISETRON
  10. COLACE [Concomitant]
     Active Substance: DOCUSATE SODIUM
  11. TOPIRAMATE. [Concomitant]
     Active Substance: TOPIRAMATE
  12. FENTANYL. [Concomitant]
     Active Substance: FENTANYL
  13. LANTUS [Concomitant]
     Active Substance: INSULIN GLARGINE
  14. TEMOZOLOMIDE. [Suspect]
     Active Substance: TEMOZOLOMIDE
     Indication: MALIGNANT MELANOMA
     Dosage: OTHER FREQUENCY:QDALONGWITH 240MG;?
     Route: 048
     Dates: start: 20170628
  15. RIZATRIPTAN. [Concomitant]
     Active Substance: RIZATRIPTAN
  16. BUSPIRONE [Concomitant]
     Active Substance: BUSPIRONE HYDROCHLORIDE
  17. PREDNISONE. [Concomitant]
     Active Substance: PREDNISONE
  18. FLUTICASONE. [Concomitant]
     Active Substance: FLUTICASONE
  19. LORATADINE. [Concomitant]
     Active Substance: LORATADINE
  20. MUPIROCIN. [Concomitant]
     Active Substance: MUPIROCIN
  21. SODIUM BICARB [Concomitant]
     Active Substance: SODIUM BICARBONATE
  22. VITAMIN B12 [Concomitant]
     Active Substance: CYANOCOBALAMIN
  23. MIRALAX [Concomitant]
     Active Substance: POLYETHYLENE GLYCOL 3350
  24. SENNA LAXATIVE [Concomitant]
     Active Substance: SENNOSIDES
  25. TYLENOL [Concomitant]
     Active Substance: ACETAMINOPHEN
  26. GLUCAGON. [Concomitant]
     Active Substance: GLUCAGON
  27. METOPROLOL TARTRATE. [Concomitant]
     Active Substance: METOPROLOL TARTRATE
  28. CALCIUM D [Concomitant]
     Active Substance: CALCIUM\VITAMIN D
  29. HUMALOG [Concomitant]
     Active Substance: INSULIN LISPRO
  30. MECLIZINE [Concomitant]
     Active Substance: MECLIZINE HYDROCHLORIDE
  31. OMEPRAZOLE. [Concomitant]
     Active Substance: OMEPRAZOLE

REACTIONS (1)
  - Hospitalisation [None]

NARRATIVE: CASE EVENT DATE: 20180114
